FAERS Safety Report 6128718-3 (Version None)
Quarter: 2009Q1

REPORT INFORMATION
  Report Type: 
  Country: None (occurrence: None)
  Receive Date: 20090323
  Receipt Date: 20090309
  Transmission Date: 20090719
  Serious: Yes (Other)
  Sender: FDA-Public Use
  Company Number: JP-PFIZER INC-2009159259

PATIENT

DRUGS (8)
  1. AMLODIN [Suspect]
     Indication: HYPERTENSION
     Dosage: 2.5 MG, 1X/DAY
     Route: 048
     Dates: start: 20081128, end: 20090107
  2. ARICEPT [Suspect]
     Indication: DEMENTIA ALZHEIMER'S TYPE
     Dosage: 5 MG, 1X/DAY
     Route: 048
     Dates: start: 20050101, end: 20080831
  3. ARICEPT [Suspect]
     Dosage: 10 MG, 1X/DAY
     Route: 048
     Dates: start: 20080901, end: 20090106
  4. ARICEPT [Suspect]
     Dosage: 5 MG, 1X/DAY
     Route: 048
     Dates: start: 20090107, end: 20090217
  5. MICARDIS [Concomitant]
     Indication: HYPERTENSION
     Dosage: 20 MG, 1X/DAY
     Route: 048
     Dates: start: 20080920, end: 20081015
  6. MICARDIS [Concomitant]
     Dosage: 40 MG, 1X/DAY
     Route: 048
     Dates: start: 20081016
  7. FORSENID [Concomitant]
     Indication: CONSTIPATION
     Dosage: 24 MG, UNK
     Route: 048
  8. NU LOTAN [Concomitant]
     Indication: HYPERTENSION
     Dosage: 25 MG, UNK
     Route: 048
     Dates: start: 20080804, end: 20080919

REACTIONS (1)
  - ATRIOVENTRICULAR BLOCK [None]
